FAERS Safety Report 5514220-6 (Version None)
Quarter: 2007Q4

REPORT INFORMATION
  Report Type: 
  Country: None (occurrence: None)
  Receive Date: 20071113
  Receipt Date: 20071108
  Transmission Date: 20080405
  Serious: Yes (Other)
  Sender: FDA-Public Use
  Company Number: CA-ASTRAZENECA-2007UW26062

PATIENT
  Age: 73 Year
  Sex: Female

DRUGS (10)
  1. XYLOCAINE [Suspect]
     Dosage: 1 PERCENT
     Route: 047
  2. CYCLOPENTOLATE HYDROCHLORIDE [Suspect]
  3. FLURBIPROFEN [Suspect]
  4. ISOCHOL [Suspect]
  5. PHENYLEPHRINE HCL [Suspect]
  6. TETRACAINE [Suspect]
  7. TOBRADEX [Suspect]
  8. TROPICAMIDE [Suspect]
  9. ZYMAR [Suspect]
  10. ACTONEL [Concomitant]

REACTIONS (2)
  - EYE DISORDER [None]
  - INFLAMMATION [None]
